FAERS Safety Report 7389436-7 (Version None)
Quarter: 2011Q2

REPORT INFORMATION
  Report Type: 
  Country: None (occurrence: None)
  Receive Date: 20110401
  Receipt Date: 20110326
  Transmission Date: 20111010
  Serious: Yes (Death, Hospitalization)
  Sender: FDA-Public Use
  Company Number: BR-BRISTOL-MYERS SQUIBB COMPANY-15629033

PATIENT
  Age: 74 Year
  Sex: Female

DRUGS (4)
  1. WARFARIN SODIUM [Suspect]
     Dosage: 10MG 2NDAY,5MG ON 3RD DAY,1-2MG/DAY.
  2. HEPARIN SODIUM [Suspect]
  3. VITAMIN K TAB [Concomitant]
  4. PREDNISONE [Concomitant]

REACTIONS (7)
  - MULTI-ORGAN FAILURE [None]
  - RENAL FAILURE ACUTE [None]
  - DEEP VEIN THROMBOSIS [None]
  - SEPTIC SHOCK [None]
  - SKIN NECROSIS [None]
  - PULMONARY EMBOLISM [None]
  - HEPARIN-INDUCED THROMBOCYTOPENIA [None]
